FAERS Safety Report 16483450 (Version 1)
Quarter: 2019Q2

REPORT INFORMATION
  Report Type: Report from Study
  Country: CA (occurrence: CA)
  Receive Date: 20190627
  Receipt Date: 20190627
  Transmission Date: 20190711
  Serious: Yes (Other)
  Sender: FDA-Public Use
  Company Number: CA-JNJFOC-20190619388

PATIENT
  Age: 31 Year
  Sex: Female
  Weight: 99.34 kg

DRUGS (1)
  1. STELARA [Suspect]
     Active Substance: USTEKINUMAB
     Indication: CROHN^S DISEASE
     Route: 058
     Dates: start: 20190401

REACTIONS (2)
  - Incision site discharge [Recovering/Resolving]
  - Mastectomy [Unknown]

NARRATIVE: CASE EVENT DATE: 2019
